FAERS Safety Report 5632991-5 (Version None)
Quarter: 2008Q1

REPORT INFORMATION
  Report Type: 
  Country: None (occurrence: None)
  Receive Date: 20080221
  Receipt Date: 20080214
  Transmission Date: 20080703
  Serious: Yes (Hospitalization)
  Sender: FDA-Public Use
  Company Number: US-JNJFOC-20080203859

PATIENT
  Sex: Female
  Weight: 49.9 kg

DRUGS (5)
  1. FENTANYL TRANSDERMAL SYSTEM [Suspect]
     Route: 062
  2. FENTANYL TRANSDERMAL SYSTEM [Suspect]
     Indication: PAIN
     Route: 062
  3. ALBUTEROL [Concomitant]
     Indication: MULTIPLE ALLERGIES
     Route: 065
  4. BONIVA [Concomitant]
     Indication: OSTEOPOROSIS
     Route: 048
  5. FORTICAL [Concomitant]
     Indication: OSTEOPOROSIS
     Route: 065

REACTIONS (2)
  - CEREBROVASCULAR ACCIDENT [None]
  - SLEEP DISORDER [None]
